FAERS Safety Report 8756926 (Version 1)
Quarter: 2012Q4

REPORT INFORMATION
  Report Type: 
  Country: FR (occurrence: FR)
  Receive Date: 20120828
  Receipt Date: 20120828
  Transmission Date: 20130627
  Serious: Yes (Hospitalization, Other)
  Sender: FDA-Public Use
  Company Number: FR-BRISTOL-MYERS SQUIBB COMPANY-16865131

PATIENT
  Age: 66 Year
  Sex: Female

DRUGS (17)
  1. HYDREA [Suspect]
     Dosage: On the following day 2/day
     Route: 048
     Dates: end: 201205
  2. LASILIX [Suspect]
     Route: 042
     Dates: start: 20120514, end: 20120515
  3. HUMALOG [Suspect]
     Route: 058
     Dates: start: 20120512, end: 20120517
  4. CLAFORAN [Suspect]
     Dosage: powder for solution
     Route: 042
     Dates: start: 20120512, end: 20120514
  5. METOJECT [Suspect]
     Indication: RHEUMATOID ARTHRITIS
     Dosage: 1DF:10 mg/ml solution for injection in prefilled syringe
     Route: 058
  6. KARDEGIC [Concomitant]
  7. MICARDIS [Concomitant]
  8. CORTANCYL [Concomitant]
     Dosage: Tabs
  9. AVLOCARDYL [Concomitant]
  10. ALDACTAZINE [Concomitant]
     Dosage: film-coated and scored tablet
  11. LAROXYL [Concomitant]
  12. INEXIUM [Concomitant]
  13. TAHOR [Concomitant]
  14. ACTONEL [Concomitant]
  15. LAMISIL [Concomitant]
  16. XYZALL [Concomitant]
  17. TEMESTA [Concomitant]

REACTIONS (4)
  - Pancytopenia [Recovered/Resolved]
  - Renal failure acute [Recovering/Resolving]
  - Infection [None]
  - Overdose [None]
